FAERS Safety Report 14904820 (Version 1)
Quarter: 2018Q2

REPORT INFORMATION
  Report Type: Spontaneous
  Country: US (occurrence: US)
  Receive Date: 20180517
  Receipt Date: 20180517
  Transmission Date: 20180711
  Serious: No
  Sender: FDA-Public Use
  Company Number: US-SA-2017SA210148

PATIENT
  Age: 51 Year
  Sex: Male

DRUGS (2)
  1. SOLOSTAR [Suspect]
     Active Substance: DEVICE
     Indication: TYPE 2 DIABETES MELLITUS
     Dosage: DOSE AND FREQUENCY 30-35 UNITS QHS,15-20 UNITS QAM
  2. LANTUS SOLOSTAR [Suspect]
     Active Substance: INSULIN GLARGINE
     Indication: TYPE 2 DIABETES MELLITUS
     Dosage: DOSE AND FREQUENCY 30-35 UNITS QHS,15-20 UNITS QAM
     Route: 051

REACTIONS (1)
  - Blood glucose abnormal [Unknown]
